FAERS Safety Report 24404504 (Version 1)
Quarter: 2024Q4

REPORT INFORMATION
  Report Type: Spontaneous
  Country: CN (occurrence: CN)
  Receive Date: 20241007
  Receipt Date: 20241007
  Transmission Date: 20250115
  Serious: No
  Sender: ROCHE
  Company Number: CN-ROCHE-3498371

PATIENT
  Age: 42 Year
  Sex: Female

DRUGS (2)
  1. OBINUTUZUMAB [Suspect]
     Active Substance: OBINUTUZUMAB
     Indication: Follicular lymphoma
     Dosage: DAY 1
     Route: 042
     Dates: start: 202204
  2. LENALIDOMIDE [Suspect]
     Active Substance: LENALIDOMIDE
     Indication: Follicular lymphoma
     Dosage: DAY 1-5
     Route: 065
     Dates: start: 202204

REACTIONS (5)
  - Pyrexia [Recovered/Resolved]
  - Epigastric discomfort [Unknown]
  - Night sweats [Unknown]
  - Fatigue [Unknown]
  - Temperature intolerance [Recovered/Resolved]
